FAERS Safety Report 8534321 (Version 3)
Quarter: 2013Q2

REPORT INFORMATION
  Report Type: Spontaneous
  Country: CA (occurrence: CA)
  Receive Date: 20120427
  Receipt Date: 20130506
  Transmission Date: 20140414
  Serious: Yes (Life-Threatening, Other)
  Sender: FDA-Public Use
  Company Number: CA-JNJFOC-20120209987

PATIENT
  Age: 29 Year
  Sex: Female
  Weight: 100 kg

DRUGS (9)
  1. REMICADE [Suspect]
     Indication: CROHN^S DISEASE
     Route: 042
  2. REMICADE [Suspect]
     Indication: CROHN^S DISEASE
     Route: 042
     Dates: start: 20100204
  3. REMICADE [Suspect]
     Indication: CROHN^S DISEASE
     Route: 042
     Dates: start: 20120217
  4. REMICADE [Suspect]
     Indication: CROHN^S DISEASE
     Route: 042
     Dates: start: 20120416, end: 20120416
  5. TYLENOL [Concomitant]
     Indication: PREMEDICATION
     Route: 048
  6. SOLU CORTEF [Concomitant]
     Indication: PREMEDICATION
     Route: 042
  7. TYLENOL [Concomitant]
     Route: 065
  8. ADVIL [Concomitant]
     Route: 065
  9. B 12 [Concomitant]
     Route: 050

REACTIONS (9)
  - Wheezing [Recovered/Resolved]
  - Dyspnoea [Recovered/Resolved]
  - Infusion related reaction [Recovering/Resolving]
  - Livedo reticularis [Recovering/Resolving]
  - Flushing [Recovered/Resolved]
  - Chills [Recovering/Resolving]
  - Pruritus [Recovered/Resolved]
  - Nausea [Recovering/Resolving]
  - Malaise [Recovering/Resolving]
